FAERS Safety Report 8860479 (Version 1)
Quarter: 2012Q4

REPORT INFORMATION
  Report Type: 
  Country: BR (occurrence: BR)
  Receive Date: 20121025
  Receipt Date: 20121025
  Transmission Date: 20130627
  Serious: Yes (Other)
  Sender: FDA-Public Use
  Company Number: BR-JNJFOC-20121011647

PATIENT
  Age: 0 Year
  Sex: Female
  Weight: 8 kg

DRUGS (1)
  1. TYLENOL GOTAS [Suspect]
     Indication: PAIN
     Dosage: 200 mg/1 ml
     Route: 048
     Dates: start: 20121015, end: 20121015

REACTIONS (3)
  - Somnolence [Recovered/Resolved]
  - Accidental overdose [Recovered/Resolved]
  - Product quality issue [Unknown]
